FAERS Safety Report 6317754-X (Version None)
Quarter: 2009Q3

REPORT INFORMATION
  Report Type: 
  Country: None (occurrence: None)
  Receive Date: 20090821
  Receipt Date: 20090817
  Transmission Date: 20100115
  Serious: Yes (Death)
  Sender: FDA-Public Use
  Company Number: PE-PFIZER INC-2009257451

PATIENT
  Age: 84 Year

DRUGS (3)
  1. TILAZEM [Suspect]
     Indication: HYPERTENSION
     Route: 048
     Dates: start: 20090727, end: 20090812
  2. XALATAN [Suspect]
     Indication: GLAUCOMA
     Route: 047
     Dates: start: 20090406, end: 20090812
  3. NORVASC [Suspect]
     Indication: HYPERTENSION
     Route: 048
     Dates: start: 20080910, end: 20090815

REACTIONS (1)
  - DEATH [None]
